FAERS Safety Report 9132180 (Version 1)
Quarter: 2013Q1

REPORT INFORMATION
  Report Type: Report from Study
  Country: CA (occurrence: CA)
  Receive Date: 20130301
  Receipt Date: 20130301
  Transmission Date: 20140127
  Serious: Yes (Other)
  Sender: FDA-Public Use
  Company Number: CA-JNJFOC-20130217425

PATIENT
  Sex: Male
  Weight: 100 kg

DRUGS (2)
  1. REMICADE [Suspect]
     Indication: SAPHO SYNDROME
     Route: 042
     Dates: start: 20130222
  2. REMICADE [Suspect]
     Indication: SAPHO SYNDROME
     Route: 042

REACTIONS (1)
  - Pericarditis [Unknown]
